FAERS Safety Report 10161982 (Version 2)
Quarter: 2014Q2

REPORT INFORMATION
  Report Type: Spontaneous
  Country: US (occurrence: None)
  Receive Date: 20140507
  Receipt Date: 20140515
  Transmission Date: 20141212
  Serious: Yes (Hospitalization)
  Sender: FDA-Public Use
  Company Number: UCM201404-000067

PATIENT
  Age: 59 Year
  Sex: Male

DRUGS (4)
  1. AMLODIPINE (AMLODIPINE) (AMLODIPINE) [Suspect]
  2. SIMVASTATIN (SIMVASTATIN) (SIMVASTATIN) [Suspect]
  3. LISINOPRIL (LISINOPRIL) (LISINOPRIL) [Suspect]
  4. METFORMIN (METFORMIN) (METFORMIN) [Suspect]

REACTIONS (3)
  - Cardiogenic shock [None]
  - Overdose [None]
  - Exposure via ingestion [None]
